FAERS Safety Report 6910618-X (Version None)
Quarter: 2010Q3

REPORT INFORMATION
  Report Type: 
  Country: None (occurrence: None)
  Receive Date: 20100806
  Receipt Date: 20100804
  Transmission Date: 20110219
  Serious: Yes (Other)
  Sender: FDA-Public Use
  Company Number: IT-EISAI INC.-E2080-00315-SPO-IT

PATIENT
  Sex: Male

DRUGS (3)
  1. INOVELON [Suspect]
     Indication: ENCEPHALOPATHY
     Route: 048
     Dates: start: 20100415, end: 20100430
  2. ETHOSUXIMIDE [Concomitant]
  3. DEPAKENE [Concomitant]

REACTIONS (2)
  - DYSSOMNIA [None]
  - IRRITABILITY [None]
